FAERS Safety Report 8438708-3 (Version None)
Quarter: 2012Q2

REPORT INFORMATION
  Report Type: 
  Country: None (occurrence: None)
  Receive Date: 20120615
  Receipt Date: 20120606
  Transmission Date: 20120825
  Serious: No
  Sender: FDA-Public Use
  Company Number: US-PFIZER INC-2012136689

PATIENT
  Sex: Male
  Weight: 99.773 kg

DRUGS (3)
  1. NARDIL [Suspect]
     Indication: FEAR
  2. NARDIL [Suspect]
     Indication: ANXIETY
     Dosage: UNK
     Route: 048
  3. NARDIL [Suspect]
     Indication: PHOBIA
     Dosage: 75 MG, DAILY

REACTIONS (4)
  - MENTAL DISORDER [None]
  - MALAISE [None]
  - MANIA [None]
  - DRUG EFFECT DECREASED [None]
